FAERS Safety Report 7162486-1 (Version None)
Quarter: 2010Q4

REPORT INFORMATION
  Report Type: 
  Country: None (occurrence: None)
  Receive Date: 20101215
  Receipt Date: 20091111
  Transmission Date: 20110411
  Serious: Yes (Other)
  Sender: FDA-Public Use
  Company Number: GB-PFIZER INC-2009295906

PATIENT
  Age: 49 Year
  Sex: Female
  Weight: 78 kg

DRUGS (13)
  1. PREGABALIN [Suspect]
     Indication: PAIN
     Dosage: 150 MG, 3X/DAY
     Route: 048
     Dates: start: 20090924, end: 20091003
  2. PREGABALIN [Suspect]
     Dosage: 50 MG, 3X/DAY
     Route: 048
     Dates: start: 20091003, end: 20091014
  3. ALFACALCIDOL [Concomitant]
     Indication: RENAL FAILURE CHRONIC
     Dosage: 250 NG, UNK
     Dates: start: 20080820
  4. AMITRIPTYLINE [Concomitant]
     Indication: PAIN
     Dosage: 75 MG, 1X/DAY
     Route: 048
     Dates: start: 19910101
  5. CANDESARTAN [Concomitant]
     Indication: HYPERTENSION
     Dosage: 4 MG, 1X/DAY
     Route: 048
     Dates: start: 20050101
  6. DOXAZOSIN [Concomitant]
     Indication: HYPERTENSION
     Dosage: 16 MG, 1X/DAY
     Route: 048
     Dates: start: 20080327
  7. ESOMEPRAZOLE [Concomitant]
     Dosage: 20 MG, 1X/DAY
     Route: 048
     Dates: start: 20010101
  8. MORPHINE SULFATE [Concomitant]
     Indication: PAIN
     Dosage: 10 MG, 2X/DAY
     Route: 048
     Dates: start: 20010101
  9. NICARDIPINE [Concomitant]
     Indication: HYPERTENSION
     Dosage: 20 MG, 3X/DAY
     Route: 048
     Dates: start: 20010101
  10. ORAMORPH SR [Concomitant]
     Indication: PAIN
     Dosage: 5 ML, AS NEEDED
     Route: 046
     Dates: start: 19910101
  11. PENICILLIN V [Concomitant]
     Indication: SPLENECTOMY
     Dosage: 250 MG, 2X/DAY
     Route: 048
     Dates: start: 20070101
  12. ROSUVASTATIN [Concomitant]
     Indication: CARDIOVASCULAR DISORDER
     Dosage: 20 MG, 1X/DAY
     Route: 048
     Dates: start: 20070101
  13. WARFARIN [Concomitant]
     Indication: THROMBOANGIITIS OBLITERANS
     Dosage: UNK
     Route: 048
     Dates: start: 20000101

REACTIONS (4)
  - BALANCE DISORDER [None]
  - CONFUSIONAL STATE [None]
  - DISTURBANCE IN ATTENTION [None]
  - INCOHERENT [None]
